FAERS Safety Report 24636512 (Version 1)
Quarter: 2024Q4

REPORT INFORMATION
  Report Type: Spontaneous
  Country: DE (occurrence: DE)
  Receive Date: 20241119
  Receipt Date: 20241119
  Transmission Date: 20250114
  Serious: Yes (Other)
  Sender: REGENERON
  Company Number: DE-BAYER-2024A163628

PATIENT
  Sex: Male

DRUGS (1)
  1. EYLEA HD [Suspect]
     Active Substance: AFLIBERCEPT
     Indication: Product used for unknown indication
     Dosage: SOLUTION FOR INJECTION, 114.3 MG/ML

REACTIONS (2)
  - Eye haemorrhage [Not Recovered/Not Resolved]
  - Blindness [Not Recovered/Not Resolved]
